FAERS Safety Report 24578225 (Version 1)
Quarter: 2024Q4

REPORT INFORMATION
  Report Type: Spontaneous
  Country: US (occurrence: US)
  Receive Date: 20241104
  Receipt Date: 20241104
  Transmission Date: 20250114
  Serious: Yes (Other)
  Sender: ENDO
  Company Number: US-ENDO USA, INC.-2024-050307

PATIENT
  Sex: Male

DRUGS (2)
  1. XIAFLEX [Suspect]
     Active Substance: COLLAGENASE CLOSTRIDIUM HISTOLYTICUM
     Indication: Peyronie^s disease
     Dosage: UNK UNKNOWN, UNKNOWN (INJECTION TWO)
     Route: 051
     Dates: start: 20241023
  2. XIAFLEX [Suspect]
     Active Substance: COLLAGENASE CLOSTRIDIUM HISTOLYTICUM
     Dosage: UNK UNKNOWN, UNKNOWN (INJECTION ONE)
     Route: 051
     Dates: start: 20241022

REACTIONS (3)
  - Arterial rupture [Recovered/Resolved]
  - Arterial repair [Recovered/Resolved]
  - Fracture of penis [Unknown]

NARRATIVE: CASE EVENT DATE: 20241001
